FAERS Safety Report 22322025 (Version 2)
Quarter: 2023Q2

REPORT INFORMATION
  Report Type: Spontaneous
  Country: US (occurrence: US)
  Receive Date: 20230516
  Receipt Date: 20230621
  Transmission Date: 20230721
  Serious: Yes (Hospitalization)
  Sender: FDA-Public Use
  Company Number: US-JNJFOC-20230522703

PATIENT
  Age: 70 Year
  Sex: Female

DRUGS (1)
  1. TECLISTAMAB [Suspect]
     Active Substance: TECLISTAMAB
     Indication: Plasma cell myeloma refractory
     Dosage: AFTER 5 MONTHS OF TREATMENT WITH TECLISTAMAB?ADMINISTERED C7 D15 TEC DOSE ON 02-MAY-2023 (LAST DOSE)
     Route: 065
     Dates: start: 202211

REACTIONS (1)
  - Guillain-Barre syndrome [Recovered/Resolved]

NARRATIVE: CASE EVENT DATE: 20230507
